FAERS Safety Report 5928876-7 (Version None)
Quarter: 2008Q4

REPORT INFORMATION
  Report Type: 
  Country: None (occurrence: None)
  Receive Date: 20081024
  Receipt Date: 20081014
  Transmission Date: 20090506
  Serious: Yes (Other)
  Sender: FDA-Public Use
  Company Number: US-JNJFOC-20080904458

PATIENT
  Sex: Female
  Weight: 54.5 kg

DRUGS (8)
  1. REMICADE [Suspect]
     Route: 042
  2. REMICADE [Suspect]
     Indication: RHEUMATOID ARTHRITIS
     Route: 042
  3. NORTRIPTYLINE HCL [Concomitant]
     Indication: INSOMNIA
  4. OMEPRAZOLE [Concomitant]
     Indication: GASTROOESOPHAGEAL REFLUX DISEASE
  5. HYDROCODONE BITARTRATE [Concomitant]
     Indication: PAIN
     Dosage: 5/500
  6. VERAPAMIL [Concomitant]
     Indication: MIGRAINE
  7. FIORICET [Concomitant]
     Indication: MIGRAINE
  8. BONIVA [Concomitant]
     Indication: OSTEOPOROSIS
     Route: 048

REACTIONS (2)
  - HYPERCALCAEMIA [None]
  - SARCOIDOSIS [None]
